FAERS Safety Report 19985622 (Version 3)
Quarter: 2021Q4

REPORT INFORMATION
  Report Type: Report from Study
  Country: US (occurrence: US)
  Receive Date: 20211022
  Receipt Date: 20211109
  Transmission Date: 20220304
  Serious: No
  Sender: FDA-Public Use
  Company Number: US-NOVARTISTESTPH-NVSC2021US239990

PATIENT
  Age: 64 Year
  Sex: Male

DRUGS (1)
  1. ENTRESTO [Suspect]
     Active Substance: SACUBITRIL\VALSARTAN
     Indication: Product used for unknown indication
     Dosage: (49/51MG), BID
     Route: 065
     Dates: start: 20210927

REACTIONS (3)
  - Ejection fraction decreased [Recovering/Resolving]
  - Blood cholesterol decreased [Recovering/Resolving]
  - Energy increased [Recovering/Resolving]

NARRATIVE: CASE EVENT DATE: 20211001
